FAERS Safety Report 8371552-4 (Version None)
Quarter: 2012Q2

REPORT INFORMATION
  Report Type: 
  Country: None (occurrence: None)
  Receive Date: 20120518
  Receipt Date: 20120511
  Transmission Date: 20120825
  Serious: Yes (Hospitalization, Other)
  Sender: FDA-Public Use
  Company Number: US-B.I. PHARMACEUTICALS,INC./RIDGEFIELD-2012-BP-10721BP

PATIENT
  Sex: Male
  Weight: 77.3 kg

DRUGS (8)
  1. MOBIC [Suspect]
     Indication: ARTHRALGIA
  2. SIMCOR [Suspect]
     Indication: VASCULAR CALCIFICATION
     Route: 065
     Dates: start: 20080101
  3. CLONAZEPAM [Concomitant]
     Indication: ANXIETY
  4. MOBIC [Suspect]
     Indication: KNEE OPERATION
     Dates: start: 20100101, end: 20111001
  5. OXYCODONE HCL [Suspect]
     Indication: ARTHRALGIA
  6. OXYCODONE HCL [Suspect]
     Indication: KNEE OPERATION
     Route: 065
     Dates: start: 20100101, end: 20111001
  7. FLURAZEPAM [Concomitant]
     Indication: SLEEP DISORDER
  8. CAMELLIA SINENSIS (CAMELLIA SINENSIS) [Concomitant]

REACTIONS (8)
  - PROCEDURAL PAIN [None]
  - HAEMATOCHEZIA [None]
  - OSTEOARTHRITIS [None]
  - ANAL STENOSIS [None]
  - CONSTIPATION [None]
  - CHONDROCALCINOSIS PYROPHOSPHATE [None]
  - KNEE ARTHROPLASTY [None]
  - BLOOD CREATININE INCREASED [None]
